FAERS Safety Report 7894041-X (Version None)
Quarter: 2011Q4

REPORT INFORMATION
  Report Type: 
  Country: None (occurrence: None)
  Receive Date: 20111104
  Receipt Date: 20111026
  Transmission Date: 20120403
  Serious: Yes (Hospitalization, Other)
  Sender: FDA-Public Use
  Company Number: DE-JNJFOC-20050702084

PATIENT
  Sex: Male
  Weight: 64.5 kg

DRUGS (5)
  1. FRAXIPARIN [Concomitant]
     Indication: DEEP VEIN THROMBOSIS
     Route: 065
     Dates: start: 20050108
  2. AZATHIOPRINE [Concomitant]
     Indication: CROHN'S DISEASE
     Route: 065
     Dates: start: 20040811
  3. INFLIXIMAB [Suspect]
     Indication: CROHN'S DISEASE
     Route: 042
     Dates: start: 20050105, end: 20050105
  4. PREDNISONE [Suspect]
     Indication: CROHN'S DISEASE
     Route: 065
     Dates: start: 20050112
  5. PANTOPRAZOLE [Concomitant]
     Route: 065
     Dates: start: 20050110

REACTIONS (2)
  - ILEUS [None]
  - DEEP VEIN THROMBOSIS [None]
